FAERS Safety Report 5387947-7 (Version None)
Quarter: 2007Q3

REPORT INFORMATION
  Report Type: 
  Country: None (occurrence: None)
  Receive Date: 20070716
  Receipt Date: 20060922
  Transmission Date: 20080115
  Serious: No
  Sender: FDA-Public Use
  Company Number: A0620937A

PATIENT
  Age: 60 Year

DRUGS (1)
  1. NICORETTE (MINT) [Suspect]

REACTIONS (4)
  - FATIGUE [None]
  - INTENTIONAL DRUG MISUSE [None]
  - MOOD ALTERED [None]
  - SOMNOLENCE [None]
